FAERS Safety Report 4990999-7 (Version None)
Quarter: 2006Q2

REPORT INFORMATION
  Report Type: 
  Country: None (occurrence: None)
  Receive Date: 20060428
  Receipt Date: 20060410
  Transmission Date: 20061013
  Serious: Yes (Death, Other)
  Sender: FDA-Public Use
  Company Number: US200604002345

PATIENT
  Sex: Female

DRUGS (3)
  1. GEMCITABINE HYDROCHLORIDE(GEMCITABINE HYDROCHLORIDE UNKNOWN FORMULATIO [Suspect]
     Indication: BREAST CANCER
     Dosage: 800 MG/M2, OTHER, INTRAVENOUS
     Route: 042
     Dates: start: 20010101, end: 20010101
  2. DOCETAXEL (DOCETAXEL) [Concomitant]
  3. DEXAMETHASONE [Concomitant]

REACTIONS (4)
  - ACUTE RESPIRATORY DISTRESS SYNDROME [None]
  - DRUG TOXICITY [None]
  - NEUTROPENIA [None]
  - PULMONARY TOXICITY [None]
